FAERS Safety Report 23690403 (Version 2)
Quarter: 2024Q2

REPORT INFORMATION
  Report Type: Other
  Country: PL (occurrence: None)
  Receive Date: 20240401
  Receipt Date: 20240501
  Transmission Date: 20240716
  Serious: Yes (Hospitalization, Other)
  Sender: FDA-Public Use
  Company Number: PL-ROCHE-3531046

PATIENT
  Age: 54 Year
  Sex: Male

DRUGS (1)
  1. OCREVUS [Suspect]
     Active Substance: OCRELIZUMAB
     Indication: Relapsing-remitting multiple sclerosis
     Dosage: TREATED WITH OCREVUS SINCE 21/JAN/2022, LAST DOSE 04/SEP/2023
     Route: 065

REACTIONS (46)
  - Gait disturbance [Unknown]
  - Paraesthesia [Unknown]
  - Stress [Unknown]
  - Micturition urgency [Unknown]
  - Spinal cord abscess [Unknown]
  - Nocturia [Unknown]
  - Blood glucose increased [Unknown]
  - Asthenia [Unknown]
  - Pyrexia [Unknown]
  - Back pain [Unknown]
  - Inflammation [Unknown]
  - Urinary tract infection [Unknown]
  - Blood pressure increased [Unknown]
  - Back pain [Unknown]
  - Night sweats [Unknown]
  - Back pain [Unknown]
  - C-reactive protein increased [Unknown]
  - Multiple sclerosis [Unknown]
  - Normocytic anaemia [Unknown]
  - Dermatitis allergic [Unknown]
  - Infection [Unknown]
  - Lymphopenia [Unknown]
  - Leukocytosis [Unknown]
  - Upper respiratory tract infection [Unknown]
  - Goitre [Unknown]
  - Diplopia [Unknown]
  - Nystagmus [Unknown]
  - Paresis [Unknown]
  - Vibratory sense increased [Unknown]
  - Gait spastic [Unknown]
  - Hyperglycaemia [Unknown]
  - Blood immunoglobulin M decreased [Unknown]
  - Blood folate decreased [Unknown]
  - Hypercholesterolaemia [Unknown]
  - Hypertriglyceridaemia [Unknown]
  - Blood immunoglobulin G decreased [Unknown]
  - Myopia [Unknown]
  - Astigmatism [Unknown]
  - Colour blindness [Unknown]
  - Renal cyst [Unknown]
  - Lung disorder [Unknown]
  - Computerised tomogram abnormal [Unknown]
  - Computerised tomogram abnormal [Unknown]
  - Loss of proprioception [Unknown]
  - Subdural abscess [Unknown]
  - Tooth abscess [Unknown]

NARRATIVE: CASE EVENT DATE: 20230822
